FAERS Safety Report 23829935 (Version 1)
Quarter: 2024Q2

REPORT INFORMATION
  Report Type: Spontaneous
  Country: BR (occurrence: BR)
  Receive Date: 20240508
  Receipt Date: 20240508
  Transmission Date: 20240716
  Serious: Yes (Death, Hospitalization, Other)
  Sender: FDA-Public Use
  Company Number: BR-ALKEM LABORATORIES LIMITED-BR-ALKEM-2023-06508

PATIENT
  Age: 79 Year
  Sex: Male

DRUGS (1)
  1. AZATHIOPRINE [Suspect]
     Active Substance: AZATHIOPRINE
     Indication: Immunosuppressant drug therapy
     Dosage: 100 MG/DAY
     Route: 065

REACTIONS (4)
  - Septic shock [Fatal]
  - Sepsis [Unknown]
  - Bacterial infection [Unknown]
  - Squamous cell carcinoma of skin [Unknown]
